FAERS Safety Report 4432137-5 (Version None)
Quarter: 2004Q3

REPORT INFORMATION
  Report Type: 
  Country: None (occurrence: None)
  Receive Date: 20040819
  Receipt Date: 20040616
  Transmission Date: 20050211
  Serious: Yes (Hospitalization)
  Sender: FDA-Public Use
  Company Number: 104603ISR

PATIENT
  Age: 15 Year
  Sex: Female

DRUGS (6)
  1. METHOTREXATE [Suspect]
     Indication: ACUTE LEUKAEMIA
     Dosage: SEE IMAGE
  2. VINCRISTINE [Concomitant]
  3. MERCAPTOPURINE [Concomitant]
  4. CYTARABINE [Concomitant]
  5. ACYCLOVIR [Concomitant]
  6. HYDROCORTISONE [Concomitant]

REACTIONS (4)
  - DRUG CLEARANCE DECREASED [None]
  - GENITAL DISORDER FEMALE [None]
  - HAEMOGLOBIN DECREASED [None]
  - MUCOSAL INFLAMMATION [None]
